FAERS Safety Report 5698677-6 (Version None)
Quarter: 2008Q2

REPORT INFORMATION
  Report Type: 
  Country: None (occurrence: None)
  Receive Date: 20080408
  Receipt Date: 20070110
  Transmission Date: 20081010
  Serious: No
  Sender: FDA-Public Use
  Company Number: US-BAYER-US-2007-000933

PATIENT
  Age: 60 Year
  Sex: Female
  Weight: 58 kg

DRUGS (5)
  1. CLIMARA [Suspect]
     Indication: HORMONE REPLACEMENT THERAPY
     Route: 062
     Dates: start: 20070109, end: 20070109
  2. XANAX [Concomitant]
     Dates: start: 20070109
  3. PROZAC [Concomitant]
     Dates: start: 20070109
  4. AMBIEN [Concomitant]
     Dates: start: 20070109
  5. HORMONES AND RELATED AGENTS [Concomitant]

REACTIONS (3)
  - DIZZINESS [None]
  - NAUSEA [None]
  - NERVOUSNESS [None]
